FAERS Safety Report 4645411-4 (Version None)
Quarter: 2005Q2

REPORT INFORMATION
  Report Type: 
  Country: None (occurrence: None)
  Receive Date: 20050425
  Receipt Date: 20050412
  Transmission Date: 20051028
  Serious: Yes (Disabling, Other)
  Sender: FDA-Public Use
  Company Number: 2004236511FR

PATIENT
  Age: 55 Year
  Sex: Male

DRUGS (5)
  1. XALATAN [Suspect]
     Indication: GLAUCOMA
     Dosage: (1 IN 1 D), OPHTHALMIC
     Route: 047
     Dates: start: 20010305
  2. XALACOM(LATANOPROST, TIMOLOL MALEATE) [Suspect]
     Indication: GLAUCOMA
     Dosage: (1 IN 1 D), OPHTHALMIC
     Route: 047
     Dates: start: 20040322
  3. CARTEOLOL HYDROCHLORIDE (CARTEOLOL HYDROCHLORIDE) [Concomitant]
  4. PILOCARPINE HYDROCHLORIDE [Concomitant]
  5. COSOPT [Concomitant]

REACTIONS (4)
  - DRUG EFFECT DECREASED [None]
  - GLAUCOMATOUS OPTIC DISC ATROPHY [None]
  - INTRAOCULAR PRESSURE INCREASED [None]
  - VISUAL ACUITY REDUCED [None]
